FAERS Safety Report 25604770 (Version 1)
Quarter: 2025Q3

REPORT INFORMATION
  Report Type: Spontaneous
  Country: US (occurrence: US)
  Receive Date: 20250725
  Receipt Date: 20250725
  Transmission Date: 20251020
  Serious: Yes (Other)
  Sender: INSMED
  Company Number: US-INSMED, INC.-2025-02759-US

PATIENT
  Age: 58 Year
  Sex: Female

DRUGS (9)
  1. AMIKACIN [Suspect]
     Active Substance: AMIKACIN
     Indication: Mycobacterium chelonae infection
     Route: 055
  2. AMIKACIN [Suspect]
     Active Substance: AMIKACIN
     Indication: Mycobacterium avium complex infection
     Route: 042
  3. IMIPENEM [Suspect]
     Active Substance: IMIPENEM
     Indication: Mycobacterium chelonae infection
     Route: 042
  4. AZITHROMYCIN [Concomitant]
     Active Substance: AZITHROMYCIN
     Indication: Mycobacterium avium complex infection
     Route: 065
  5. ETHAMBUTOL [Concomitant]
     Active Substance: ETHAMBUTOL HYDROCHLORIDE
     Indication: Mycobacterium avium complex infection
     Route: 065
  6. CLOFAZIMINE [Concomitant]
     Active Substance: CLOFAZIMINE
     Indication: Mycobacterium chelonae infection
     Route: 048
  7. OMADACYCLINE [Concomitant]
     Active Substance: OMADACYCLINE
     Indication: Preoperative care
     Route: 065
  8. AVIBACTAM [Concomitant]
     Active Substance: AVIBACTAM
     Indication: Preoperative care
     Route: 042
  9. CEFTAZIDIME [Concomitant]
     Active Substance: CEFTAZIDIME
     Indication: Preoperative care
     Route: 042

REACTIONS (3)
  - Leukopenia [Unknown]
  - Ear disorder [Recovered/Resolved]
  - Off label use [Unknown]
